FAERS Safety Report 7130385-7 (Version None)
Quarter: 2010Q4

REPORT INFORMATION
  Report Type: 
  Country: None (occurrence: None)
  Receive Date: 20101201
  Receipt Date: 20100928
  Transmission Date: 20110411
  Serious: Yes (Other)
  Sender: FDA-Public Use
  Company Number: PHEH2009US11130

PATIENT
  Sex: Female

DRUGS (7)
  1. RECLAST [Suspect]
     Dosage: UNK, ONCE/SINGLE
     Dates: start: 20080601
  2. RECLAST [Suspect]
     Dosage: UNK, ONCE/SINGLE
     Dates: start: 20090601
  3. RECLAST [Suspect]
     Dosage: UNK
     Dates: start: 20100813
  4. PROTONIX [Concomitant]
     Indication: GASTROOESOPHAGEAL REFLUX DISEASE
  5. VITAMIN D3 [Concomitant]
  6. CALCIUM [Concomitant]
  7. HYDROCHLOROTHIAZDE TAB [Concomitant]
     Indication: HYPERTENSION

REACTIONS (13)
  - ARTHRITIS [None]
  - BACK PAIN [None]
  - CONTUSION [None]
  - DIZZINESS [None]
  - EXOSTOSIS [None]
  - FALL [None]
  - FEELING ABNORMAL [None]
  - HEAD INJURY [None]
  - HEADACHE [None]
  - INTERVERTEBRAL DISC DISORDER [None]
  - MULTIPLE FRACTURES [None]
  - NERVE COMPRESSION [None]
  - PARAESTHESIA [None]
